FAERS Safety Report 25215587 (Version 1)
Quarter: 2025Q2

REPORT INFORMATION
  Report Type: Spontaneous
  Country: US (occurrence: US)
  Receive Date: 20250418
  Receipt Date: 20250418
  Transmission Date: 20250716
  Serious: No
  Sender: Phathom Pharmaceuticals
  Company Number: US-PHATHOM PHARMACEUTICALS INC.-2025PHT00428

PATIENT
  Age: 70 Year
  Sex: Female
  Weight: 63.503 kg

DRUGS (5)
  1. VOQUEZNA [Suspect]
     Active Substance: VONOPRAZAN FUMARATE
     Indication: Oesophagitis
     Dosage: 20 MG, 1X/DAY
     Route: 048
     Dates: start: 2023, end: 202502
  2. VOQUEZNA [Suspect]
     Active Substance: VONOPRAZAN FUMARATE
     Indication: Gastrooesophageal reflux disease
  3. VOQUEZNA [Suspect]
     Active Substance: VONOPRAZAN FUMARATE
     Indication: Gastric ulcer
  4. UNSPECIFIED MEDICATION FOR BLOOD PRESSURE [Concomitant]
  5. UNSPECIFIED MEDICATION FOR ECZEMA [Concomitant]

REACTIONS (4)
  - Product dose omission issue [Not Recovered/Not Resolved]
  - Haematemesis [Not Recovered/Not Resolved]
  - Pain [Not Recovered/Not Resolved]
  - Faeces discoloured [Not Recovered/Not Resolved]

NARRATIVE: CASE EVENT DATE: 20250201
